FAERS Safety Report 9752237 (Version 2)
Quarter: 2014Q1

REPORT INFORMATION
  Report Type: Spontaneous
  Country: IT (occurrence: None)
  Receive Date: 20131211
  Receipt Date: 20140115
  Transmission Date: 20141002
  Serious: Yes (Other)
  Sender: FDA-Public Use
  Company Number: 2013AP010157

PATIENT
  Age: 13 Year
  Sex: Female

DRUGS (2)
  1. LEVETIRACETAM [Suspect]
     Indication: PETIT MAL EPILEPSY
     Dosage: TAB_FILM
     Route: 048
     Dates: start: 20121003, end: 20121017
  2. KEPPRA (LEVETIRACETAM) [Concomitant]

REACTIONS (3)
  - Petit mal epilepsy [None]
  - Enuresis [None]
  - Mental disorder [None]
